FAERS Safety Report 10007444 (Version 4)
Quarter: 2014Q2

REPORT INFORMATION
  Report Type: Spontaneous
  Country: US (occurrence: US)
  Receive Date: 20140313
  Receipt Date: 20140502
  Transmission Date: 20141212
  Serious: No
  Sender: FDA-Public Use
  Company Number: US-PFIZER INC-2014042819

PATIENT
  Age: 61 Year
  Sex: Female
  Weight: 58.96 kg

DRUGS (3)
  1. LYRICA [Suspect]
     Dosage: 150 MG, UNK
     Route: 048
     Dates: start: 20140103
  2. TEGRETOL [Concomitant]
     Indication: TRIGEMINAL NEURALGIA
     Dosage: 200 MG, 3X/DAY QTY 90 OF 200 MG 3 TIMES A DAY (2 REFILLS)
     Route: 048
     Dates: start: 20140103
  3. TIARAMIDE HYDROCHLORIDE [Concomitant]
     Dosage: 50 MG, 2X/DAY, QTY 60 OF 50 MG 2 TIMES A DAY (1 REFILLS)
     Route: 048
     Dates: start: 20140103

REACTIONS (7)
  - Headache [Unknown]
  - Injury [Unknown]
  - Tooth disorder [Unknown]
  - Facial pain [Unknown]
  - Aphasia [Unknown]
  - Pain [Unknown]
  - Facial neuralgia [Unknown]
